FAERS Safety Report 9789014 (Version 1)
Quarter: 2013Q4

REPORT INFORMATION
  Report Type: Spontaneous
  Country: US (occurrence: US)
  Receive Date: 20131230
  Receipt Date: 20131230
  Transmission Date: 20140711
  Serious: No
  Sender: FDA-Public Use
  Company Number: US-ASTRAZENECA-2013SE78436

PATIENT
  Age: 76 Year
  Sex: Male

DRUGS (8)
  1. BRILINTA [Suspect]
     Route: 048
     Dates: start: 20130913, end: 20130921
  2. TENORMIN [Suspect]
     Route: 048
  3. ASPIRIN [Concomitant]
     Indication: PROPHYLAXIS
     Route: 048
  4. LIPITOR [Concomitant]
     Route: 048
  5. NITROSTAT [Concomitant]
     Indication: CHEST PAIN
  6. VIAGRA [Concomitant]
     Route: 048
  7. ZYLOPRIM [Concomitant]
     Route: 048
  8. PLAVIX [Concomitant]
     Route: 048

REACTIONS (3)
  - Hiccups [Unknown]
  - Dyspnoea [Unknown]
  - Nausea [Unknown]
